FAERS Safety Report 14515218 (Version 3)
Quarter: 2019Q1

REPORT INFORMATION
  Report Type: Spontaneous
  Country: JP (occurrence: JP)
  Receive Date: 20180210
  Receipt Date: 20190227
  Transmission Date: 20190417
  Serious: Yes (Life-Threatening, Other)
  Sender: FDA-Public Use
  Company Number: JP-AMGEN-JPNSP2017066032

PATIENT
  Age: 61 Year
  Sex: Female

DRUGS (7)
  1. DOCETAXEL. [Concomitant]
     Active Substance: DOCETAXEL
     Dosage: 120 MG, Q3WK
     Route: 041
     Dates: start: 20170214, end: 20170807
  2. HERCEPTIN [Concomitant]
     Active Substance: TRASTUZUMAB
     Indication: BREAST CANCER RECURRENT
     Dosage: 454 MG, Q3WK
     Route: 041
     Dates: start: 20170123, end: 20170123
  3. PERJETA [Concomitant]
     Active Substance: PERTUZUMAB
     Dosage: 420 MG, Q3WK
     Route: 041
     Dates: start: 20170214
  4. DOCETAXEL. [Concomitant]
     Active Substance: DOCETAXEL
     Indication: BREAST CANCER RECURRENT
     Dosage: 120 MG, Q3WK
     Route: 041
     Dates: start: 20170123, end: 20170123
  5. HERCEPTIN [Concomitant]
     Active Substance: TRASTUZUMAB
     Dosage: 336 MG, Q3WK
     Route: 041
     Dates: start: 20170214
  6. PERJETA [Concomitant]
     Active Substance: PERTUZUMAB
     Indication: BREAST CANCER RECURRENT
     Dosage: 840 MG, Q3WK
     Route: 041
     Dates: start: 20170123, end: 20170123
  7. G-LASTA [Suspect]
     Active Substance: PEGFILGRASTIM
     Indication: COLONY STIMULATING FACTOR THERAPY
     Dosage: 3.6 MG, Q2WK
     Route: 058
     Dates: start: 20170215, end: 20170215

REACTIONS (2)
  - Pyrexia [Recovered/Resolved]
  - Aortitis [Recovering/Resolving]

NARRATIVE: CASE EVENT DATE: 20170228
